FAERS Safety Report 5191112-6 (Version None)
Quarter: 2006Q4

REPORT INFORMATION
  Report Type: 
  Country: None (occurrence: None)
  Receive Date: 20061226
  Receipt Date: 20061222
  Transmission Date: 20070319
  Serious: Yes (Other)
  Sender: FDA-Public Use
  Company Number: PHNU2006DE04265

PATIENT
  Age: 82 Year
  Sex: Male

DRUGS (2)
  1. ZOMETA [Suspect]
     Indication: METASTASES TO BONE
     Dosage: 4 MG, ONCE/SINGLE
     Route: 042
     Dates: start: 20061013, end: 20061013
  2. CLODRONIC ACID [Concomitant]

REACTIONS (3)
  - DISORIENTATION [None]
  - MEMORY IMPAIRMENT [None]
  - SOMNOLENCE [None]
